FAERS Safety Report 5752205-5 (Version None)
Quarter: 2008Q2

REPORT INFORMATION
  Report Type: 
  Country: None (occurrence: None)
  Receive Date: 20080529
  Receipt Date: 20080527
  Transmission Date: 20081010
  Serious: Yes (Hospitalization, Other)
  Sender: FDA-Public Use
  Company Number: US-ELI_LILLY_AND_COMPANY-US200802001741

PATIENT
  Sex: Male
  Weight: 149.21 kg

DRUGS (3)
  1. BYETTA [Suspect]
     Dosage: 5 UG, 2/D
     Route: 065
     Dates: start: 20070831, end: 20071109
  2. BYETTA [Suspect]
     Dosage: 10 UG, 2/D
     Dates: start: 20071103, end: 20071226
  3. LOPID [Concomitant]
     Indication: BLOOD TRIGLYCERIDES INCREASED
     Dosage: 600 UNK, UNKNOWN
     Route: 048
     Dates: start: 20071109

REACTIONS (2)
  - PANCREATITIS [None]
  - WEIGHT DECREASED [None]
